FAERS Safety Report 8615013-3 (Version None)
Quarter: 2012Q3

REPORT INFORMATION
  Report Type: 
  Country: None (occurrence: None)
  Receive Date: 20120814
  Receipt Date: 20120814
  Transmission Date: 20120928
  Serious: Yes (Hospitalization)
  Sender: FDA-Public Use
  Company Number: None

PATIENT
  Age: 84 Year
  Sex: Male
  Weight: 75.7 kg

DRUGS (1)
  1. WARFARIN SODIUM [Suspect]
     Indication: ATRIAL FIBRILLATION
     Dosage: 5 MG EVERY DAY PO
     Route: 048
     Dates: start: 20091026, end: 20120312

REACTIONS (5)
  - FAECES DISCOLOURED [None]
  - ABDOMINAL PAIN [None]
  - VOMITING [None]
  - GASTRIC HAEMORRHAGE [None]
  - NAUSEA [None]
